FAERS Safety Report 13676790 (Version 1)
Quarter: 2017Q2

REPORT INFORMATION
  Report Type: Report from Study
  Country: FR (occurrence: FR)
  Receive Date: 20170622
  Receipt Date: 20170622
  Transmission Date: 20170830
  Serious: Yes (Other)
  Sender: FDA-Public Use
  Company Number: FR-ACCORD-052827

PATIENT
  Age: 26 Year
  Sex: Male

DRUGS (2)
  1. BENDAMUSTINE/BENDAMUSTINE HYDROCHLORIDE [Suspect]
     Active Substance: BENDAMUSTINE HYDROCHLORIDE
     Indication: HODGKIN^S DISEASE STAGE IV
     Dosage: ON DAYS 1 AND 2, EVERY 3 WEEKS
  2. BRENTUXIMAB VEDOTIN [Suspect]
     Active Substance: BRENTUXIMAB VEDOTIN
     Indication: HODGKIN^S DISEASE STAGE IV
     Dosage: ON DAY 1, EVERY 3 WEEKS

REACTIONS (4)
  - Neutropenia [Unknown]
  - Anaemia [Unknown]
  - Off label use [Unknown]
  - Pruritus [Unknown]
